FAERS Safety Report 21303373 (Version 1)
Quarter: 2022Q3

REPORT INFORMATION
  Report Type: Spontaneous
  Country: US (occurrence: None)
  Receive Date: 20220907
  Receipt Date: 20220907
  Transmission Date: 20221027
  Serious: Yes (Hospitalization)
  Sender: FDA-Public Use
  Company Number: None

PATIENT
  Age: 64 Year
  Sex: Female
  Weight: 42.2 kg

DRUGS (5)
  1. WARFARIN [Suspect]
     Active Substance: WARFARIN
  2. COSMETICS [Suspect]
     Active Substance: COSMETICS
  3. MILK OF MAGNESIA [Concomitant]
     Active Substance: MAGNESIUM HYDROXIDE
     Dates: start: 20220802, end: 20220816
  4. Pepto-Bi smol [Concomitant]
     Dates: start: 20220802, end: 20220816
  5. warfan^n [Concomitant]

REACTIONS (10)
  - Dyspepsia [None]
  - Constipation [None]
  - Urinary incontinence [None]
  - Diarrhoea [None]
  - Decreased appetite [None]
  - Haemoglobin decreased [None]
  - Upper gastrointestinal haemorrhage [None]
  - Anticoagulation drug level above therapeutic [None]
  - Anaemia [None]
  - Gastric disorder [None]

NARRATIVE: CASE EVENT DATE: 20220816
